FAERS Safety Report 25726815 (Version 2)
Quarter: 2025Q3

REPORT INFORMATION
  Report Type: Spontaneous
  Country: EU (occurrence: EU)
  Receive Date: 20250826
  Receipt Date: 20250925
  Transmission Date: 20251020
  Serious: Yes (Hospitalization, Other)
  Sender: PFIZER
  Company Number: EU-PFIZER INC-PV202500041661

PATIENT
  Age: 37 Year
  Sex: Female

DRUGS (3)
  1. CYTOTEC [Suspect]
     Active Substance: MISOPROSTOL
     Indication: Cervical polyp
     Dosage: 200 UG, 2X/DAY (2 PILLS INSTERTED IN MY VAGINA)
     Route: 067
     Dates: start: 20241129, end: 20241129
  2. PROGEBEL [Concomitant]
     Indication: Uterine contractions during pregnancy
  3. OMNIBIONTA [AMINOBENZOIC ACID;MINERALS NOS;VITAMINS NOS] [Concomitant]
     Indication: Vitamin supplementation

REACTIONS (9)
  - Uterine hypertonus [Unknown]
  - Gestational diabetes [Unknown]
  - Impaired work ability [Unknown]
  - Maternal exposure during pregnancy [Unknown]
  - Oedema peripheral [Unknown]
  - Iron deficiency anaemia [Unknown]
  - Contraindicated product administered [Unknown]
  - Incorrect route of product administration [Unknown]
  - Off label use [Unknown]

NARRATIVE: CASE EVENT DATE: 20240101
